FAERS Safety Report 9658378 (Version 1)
Quarter: 2013Q4

REPORT INFORMATION
  Report Type: Spontaneous
  Country: US (occurrence: US)
  Receive Date: 20131030
  Receipt Date: 20131030
  Transmission Date: 20140711
  Serious: No
  Sender: FDA-Public Use
  Company Number: US-PURDUE-USA-2012-0083347

PATIENT
  Age: 73 Year
  Sex: Female

DRUGS (1)
  1. OXYCONTIN (NDA 22-272) [Suspect]
     Indication: PAIN
     Dosage: 40 MG, Q4H

REACTIONS (9)
  - Medication residue present [Unknown]
  - Malaise [Unknown]
  - Nausea [Unknown]
  - Abdominal distension [Unknown]
  - Dyspepsia [Unknown]
  - Hyperhidrosis [Unknown]
  - Drug effect decreased [Unknown]
  - Drug ineffective [Unknown]
  - Intentional drug misuse [Unknown]
